FAERS Safety Report 6874788-4 (Version None)
Quarter: 2010Q3

REPORT INFORMATION
  Report Type: 
  Country: None (occurrence: None)
  Receive Date: 20100723
  Receipt Date: 20100721
  Transmission Date: 20110219
  Serious: Yes (Other)
  Sender: FDA-Public Use
  Company Number: 1022556-2010-00048

PATIENT
  Sex: Female

DRUGS (1)
  1. ACT MOUTHWASH RESTORING COOL SPLASH MINT 33.8 [Suspect]
     Indication: DRUG THERAPY
     Dosage: ORAL RINSE
     Route: 048

REACTIONS (1)
  - HEART RATE INCREASED [None]
